FAERS Safety Report 19570826 (Version 1)
Quarter: 2021Q3

REPORT INFORMATION
  Report Type: Spontaneous
  Country: US (occurrence: US)
  Receive Date: 20210716
  Receipt Date: 20210716
  Transmission Date: 20211014
  Serious: Yes (Death)
  Sender: FDA-Public Use
  Company Number: US-CYCLE PHARMACEUTICALS LTD-2021-CYC-000023

PATIENT
  Age: 20 Year
  Sex: Female
  Weight: 66.98 kg

DRUGS (1)
  1. NITYR [Suspect]
     Active Substance: NITISINONE
     Indication: TYROSINAEMIA
     Dosage: TWO 10 MG TABLETS EVERY MORNING AND ONE 10 MG TABET EITH ONE FIVE MG TABLET EVERY EVENING BY MOUTH
     Route: 048

REACTIONS (1)
  - Road traffic accident [Fatal]

NARRATIVE: CASE EVENT DATE: 20210629
